FAERS Safety Report 16270426 (Version 2)
Quarter: 2019Q2

REPORT INFORMATION
  Report Type: Spontaneous
  Country: US (occurrence: US)
  Receive Date: 20190503
  Receipt Date: 20190605
  Transmission Date: 20190711
  Serious: No
  Sender: FDA-Public Use
  Company Number: US-ASTRAZENECA-2019SE54822

PATIENT
  Age: 77 Year
  Sex: Female

DRUGS (1)
  1. PULMICORT FLEXHALER [Suspect]
     Active Substance: BUDESONIDE
     Dosage: 90.0UG UNKNOWN
     Route: 055

REACTIONS (4)
  - Product dose omission [Not Recovered/Not Resolved]
  - Frustration tolerance decreased [Unknown]
  - Device issue [Unknown]
  - Drug ineffective [Unknown]
